FAERS Safety Report 7620324-4 (Version None)
Quarter: 2011Q3

REPORT INFORMATION
  Report Type: 
  Country: None (occurrence: None)
  Receive Date: 20110719
  Receipt Date: 20110712
  Transmission Date: 20111222
  Serious: Yes (Life-Threatening, Hospitalization, Other)
  Sender: FDA-Public Use
  Company Number: PHHY2011DE62971

PATIENT
  Age: 71 Year
  Sex: Female
  Weight: 55 kg

DRUGS (1)
  1. RASILEZ [Suspect]
     Dosage: 1 DF, UNK
     Route: 048
     Dates: start: 20110403, end: 20110413

REACTIONS (6)
  - RENAL FAILURE ACUTE [None]
  - DEHYDRATION [None]
  - NAUSEA [None]
  - BLOOD CREATININE INCREASED [None]
  - VOMITING [None]
  - AZOTAEMIA [None]
